FAERS Safety Report 6614141-1 (Version None)
Quarter: 2010Q1

REPORT INFORMATION
  Report Type: 
  Country: None (occurrence: None)
  Receive Date: 20100303
  Receipt Date: 20100303
  Transmission Date: 20100710
  Serious: Yes (Hospitalization)
  Sender: FDA-Public Use
  Company Number: None

PATIENT
  Age: 69 Year
  Sex: Female
  Weight: 70.31 kg

DRUGS (10)
  1. BACLOFEN [Suspect]
     Indication: MUSCLE SPASMS
     Dosage: 10 MG QID ORAL
     Route: 048
     Dates: start: 20100225, end: 20100228
  2. REGLAN [Concomitant]
  3. ALBUTEROL [Concomitant]
  4. ADVAIR DISKUS 100/50 [Concomitant]
  5. NEXIUM [Concomitant]
  6. DURAGESIC-100 [Concomitant]
  7. OXYCONTIN [Concomitant]
  8. VIT E [Concomitant]
  9. ASPIRIN [Concomitant]
  10. LAXATIVE [Concomitant]

REACTIONS (1)
  - TONIC CLONIC MOVEMENTS [None]
